FAERS Safety Report 23723182 (Version 1)
Quarter: 2024Q2

REPORT INFORMATION
  Report Type: Spontaneous
  Country: BR (occurrence: BR)
  Receive Date: 20240409
  Receipt Date: 20240409
  Transmission Date: 20240716
  Serious: Yes (Other)
  Sender: FDA-Public Use
  Company Number: BR-ELI_LILLY_AND_COMPANY-BR202403007493

PATIENT
  Age: 68 Year
  Sex: Female

DRUGS (1)
  1. BASAGLAR [Suspect]
     Active Substance: INSULIN GLARGINE
     Indication: Type 2 diabetes mellitus
     Dosage: 20 INTERNATIONAL UNIT, BID
     Route: 065
     Dates: start: 2021

REACTIONS (3)
  - Cardiac disorder [Unknown]
  - Cataract [Unknown]
  - Inappropriate schedule of product administration [Unknown]
